FAERS Safety Report 4367334-0 (Version None)
Quarter: 2004Q2

REPORT INFORMATION
  Report Type: 
  Country: None (occurrence: None)
  Receive Date: 20040528
  Receipt Date: 20040528
  Transmission Date: 20050107
  Serious: Yes (Hospitalization)
  Sender: FDA-Public Use
  Company Number: None

PATIENT
  Age: 58 Year
  Sex: Male
  Weight: 80.2867 kg

DRUGS (10)
  1. 13-CIS RETINOIC ACID [Suspect]
     Indication: PROSTATE CANCER METASTATIC
     Dosage: 100 MG PO QD (D1-4)
     Route: 048
     Dates: start: 20030805, end: 20031212
  2. ALPHA INTERFERON [Suspect]
     Indication: PROSTATE CANCER METASTATIC
     Dosage: 7MU SC (D1-4)
     Route: 058
     Dates: start: 20030805, end: 20031212
  3. TAXOTERE [Suspect]
     Indication: PROSTATE CANCER METASTATIC
     Dosage: ONCE 113 MG IV (D2)
     Route: 042
     Dates: start: 20030806, end: 20031210
  4. ESTRAMUSTINE [Suspect]
     Indication: PROSTATE CANCER METASTATIC
     Dosage: 840 MG PO TID
     Route: 048
     Dates: start: 20030805, end: 20031204
  5. COUMADIN [Concomitant]
  6. SENNA [Concomitant]
  7. CARTIA XT [Concomitant]
  8. NEXIUM [Concomitant]
  9. LUPRON [Concomitant]
  10. ZOMETA [Concomitant]

REACTIONS (5)
  - CELLULITIS [None]
  - COUGH [None]
  - OPEN WOUND [None]
  - SKIN DISCOLOURATION [None]
  - WOUND DRAINAGE [None]
